FAERS Safety Report 8614077-0 (Version None)
Quarter: 2012Q3

REPORT INFORMATION
  Report Type: 
  Country: None (occurrence: None)
  Receive Date: 20120823
  Receipt Date: 20120815
  Transmission Date: 20120928
  Serious: Yes (Hospitalization)
  Sender: FDA-Public Use
  Company Number: US-BAYER-2012-021624

PATIENT
  Age: 51 Year
  Sex: Female
  Weight: 82.54 kg

DRUGS (9)
  1. PERCOCET [Concomitant]
     Dosage: INFREQUENT
  2. CRANBERRY [Concomitant]
  3. YAZ [Suspect]
     Indication: MENOPAUSE
  4. ZOLPIDEM [Concomitant]
     Dosage: 5 MG, HS
  5. MULTI-VITAMINS [Concomitant]
  6. PREDNISONE TAB [Concomitant]
     Dosage: 01 MG, UNK
  7. IBUPROFEN [Concomitant]
     Dosage: UNK UNK, PRN
  8. YAZ [Suspect]
     Indication: PREMENSTRUAL SYNDROME
     Dosage: UNK
     Dates: start: 20070817, end: 20080930
  9. ASCORBIC ACID [Concomitant]

REACTIONS (9)
  - DEEP VEIN THROMBOSIS [None]
  - FEELING HOT [None]
  - VEIN PAIN [None]
  - MUSCLE SPASMS [None]
  - ANXIETY [None]
  - OEDEMA PERIPHERAL [None]
  - ERYTHEMA [None]
  - PAIN IN EXTREMITY [None]
  - VARICOSE VEIN [None]
